FAERS Safety Report 23798202 (Version 2)
Quarter: 2024Q2

REPORT INFORMATION
  Report Type: Report from Study
  Country: US (occurrence: US)
  Receive Date: 20240430
  Receipt Date: 20240516
  Transmission Date: 20240715
  Serious: Yes (Hospitalization)
  Sender: FDA-Public Use
  Company Number: US-SA-2021SA222202

PATIENT
  Age: 63 Year
  Sex: Female
  Weight: 122.4 kg

DRUGS (47)
  1. ISATUXIMAB-IRFC [Suspect]
     Active Substance: ISATUXIMAB-IRFC
     Indication: Plasma cell myeloma refractory
     Dosage: 500 MG, QW
     Dates: start: 20210608, end: 20210622
  2. POMALIDOMIDE [Suspect]
     Active Substance: POMALIDOMIDE
     Indication: Plasma cell myeloma refractory
     Dosage: 4 MG, QD
     Dates: start: 20210608, end: 20210627
  3. DEXAMETHASONE [Suspect]
     Active Substance: DEXAMETHASONE
     Indication: Plasma cell myeloma refractory
     Dosage: 10 MG, QD
     Route: 065
     Dates: start: 20210608, end: 20210707
  4. NINLARO [Concomitant]
     Active Substance: IXAZOMIB CITRATE
     Indication: Plasma cell myeloma refractory
     Dosage: UNK UNK, QCY
     Dates: start: 20210608, end: 20210608
  5. MYRBETRIQ [Concomitant]
     Active Substance: MIRABEGRON
     Indication: Osteoporosis
     Dosage: UNK
     Route: 065
     Dates: start: 2018
  6. MYRBETRIQ [Concomitant]
     Active Substance: MIRABEGRON
     Indication: Pollakiuria
  7. HYDROXYZINE [Concomitant]
     Active Substance: HYDROXYZINE HYDROCHLORIDE
     Indication: Cholecystectomy
  8. HYDROXYZINE [Concomitant]
     Active Substance: HYDROXYZINE HYDROCHLORIDE
     Indication: Biopsy breast
  9. GABAPENTIN [Concomitant]
     Active Substance: GABAPENTIN
     Indication: Biopsy thyroid gland
     Dosage: UNK
     Dates: start: 20180801
  10. ATARAX [Concomitant]
     Active Substance: HYDROXYZINE HYDROCHLORIDE
     Indication: Anxiety
     Dosage: UNK
     Dates: start: 2018
  11. RIVAROXABAN [Concomitant]
     Active Substance: RIVAROXABAN
     Dosage: UNK
     Dates: start: 20180801
  12. EFFEXOR [Concomitant]
     Active Substance: VENLAFAXINE HYDROCHLORIDE
     Indication: Depression
     Dosage: UNK
     Dates: start: 20180501
  13. VITAMINS NOS [Concomitant]
     Active Substance: VITAMINS
     Indication: Supplementation therapy
     Dosage: UNK
     Dates: start: 20210101
  14. VENLAFAXINE [Concomitant]
     Active Substance: VENLAFAXINE HYDROCHLORIDE
     Indication: Biopsy breast
     Dosage: UNK
     Dates: start: 20180501
  15. HYDRALAZINE [Concomitant]
     Active Substance: HYDRALAZINE HYDROCHLORIDE
     Indication: Intrathecal pump insertion
     Dosage: UNK
  16. CALCIUM CARBONATE\CHOLECALCIFEROL [Concomitant]
     Active Substance: CALCIUM CARBONATE\CHOLECALCIFEROL
     Indication: Supplementation therapy
     Dosage: UNK
     Dates: start: 20180501, end: 20210705
  17. OXYCODONE AND ACETAMINOPHEN [Concomitant]
     Active Substance: ACETAMINOPHEN\OXYCODONE HYDROCHLORIDE
     Indication: Gastric bypass
     Dosage: UNK
  18. ACETAMINOPHEN [Concomitant]
     Active Substance: ACETAMINOPHEN
     Indication: Gastric bypass
     Dosage: UNK
  19. CHOLECALCIFEROL [Concomitant]
     Active Substance: CHOLECALCIFEROL
     Indication: Central venous catheterisation
     Dosage: UNK
     Dates: start: 20210101, end: 20210706
  20. CYCLOBENZAPRINE [Concomitant]
     Active Substance: CYCLOBENZAPRINE
     Indication: Gastric bypass
     Dosage: UNK
     Route: 065
  21. CYCLOBENZAPRINE [Concomitant]
     Active Substance: CYCLOBENZAPRINE
     Indication: Central venous catheterisation
  22. REMERON [Concomitant]
     Active Substance: MIRTAZAPINE
     Indication: Hypertension
     Dosage: UNK
     Dates: start: 2018
  23. HYDROXYZINE PAMOATE [Concomitant]
     Active Substance: HYDROXYZINE PAMOATE
     Indication: Cholecystectomy
     Dosage: UNK
  24. XARELTO [Concomitant]
     Active Substance: RIVAROXABAN
     Indication: Knee arthroplasty
     Dosage: UNK
     Dates: start: 20180801, end: 20210627
  25. SENNOSIDES [Concomitant]
     Active Substance: SENNOSIDES
     Indication: Diabetes mellitus
     Dosage: UNK
     Dates: start: 20210527
  26. CLONAZEPAM [Concomitant]
     Active Substance: CLONAZEPAM
     Indication: Gastric bypass
     Dosage: UNK
  27. VITAMIN B COMPLEX [Concomitant]
     Active Substance: CYANOCOBALAMIN\DEXPANTHENOL\NIACINAMIDE\PYRIDOXINE HYDROCHLORIDE\RIBOFLAVIN 5^-PHOSPHATE SODIUM\THIA
     Indication: Gastric bypass
     Dosage: UNK
     Dates: start: 20180501
  28. VITAMIN B COMPLEX [Concomitant]
     Active Substance: CYANOCOBALAMIN\DEXPANTHENOL\NIACINAMIDE\PYRIDOXINE HYDROCHLORIDE\RIBOFLAVIN 5^-PHOSPHATE SODIUM\THIA
     Indication: Vitamin supplementation
  29. NITROFURANTOIN [Concomitant]
     Active Substance: NITROFURANTOIN
     Indication: Obesity
     Dosage: UNK
     Dates: start: 20210401
  30. APRESOLINE HYDROCHLORIDE [Concomitant]
     Active Substance: HYDRALAZINE HYDROCHLORIDE
     Indication: Hypertension
     Dosage: UNK
     Dates: start: 2018
  31. ENDOCET [Concomitant]
     Active Substance: ACETAMINOPHEN\OXYCODONE HYDROCHLORIDE
     Indication: Lumbar vertebral fracture
     Dosage: UNK
     Dates: start: 20210706
  32. ENDOCET [Concomitant]
     Active Substance: ACETAMINOPHEN\OXYCODONE HYDROCHLORIDE
     Indication: Back pain
  33. ASPIRIN [Concomitant]
     Active Substance: ASPIRIN
     Indication: Gastric bypass
     Dosage: UNK
     Dates: start: 20180907, end: 20210707
  34. ASPIRIN [Concomitant]
     Active Substance: ASPIRIN
     Indication: Hypertension
  35. ASPIRIN [Concomitant]
     Active Substance: ASPIRIN
     Indication: Pulmonary embolism
  36. ARICEPT [Concomitant]
     Active Substance: DONEPEZIL HYDROCHLORIDE
     Indication: Memory impairment
     Dosage: UNK
     Dates: start: 202105, end: 202107
  37. SEROQUEL [Concomitant]
     Active Substance: QUETIAPINE FUMARATE
     Indication: Biopsy breast
     Dosage: UNK
     Dates: start: 20210627
  38. SEROQUEL [Concomitant]
     Active Substance: QUETIAPINE FUMARATE
     Indication: Depression
     Dosage: UNK
     Dates: start: 2018, end: 20210617
  39. ZOFRAN [Concomitant]
     Active Substance: ONDANSETRON HYDROCHLORIDE
     Indication: Nausea
     Dosage: UNK
     Dates: start: 20190424
  40. ACYCLOVIR [Concomitant]
     Active Substance: ACYCLOVIR
     Indication: Supplementation therapy
     Dosage: UNK
     Dates: start: 20210303
  41. OMEPRAZOLE [Concomitant]
     Active Substance: DONEPEZIL HYDROCHLORIDE\OMEPRAZOLE\OMEPRAZOLE MAGNESIUM
     Indication: Lacunar infarction
     Dosage: UNK
     Dates: start: 20210412
  42. TYLENOL [Concomitant]
     Active Substance: ACETAMINOPHEN
     Indication: Knee arthroplasty
     Dosage: UNK
     Dates: start: 2018
  43. TYLENOL [Concomitant]
     Active Substance: ACETAMINOPHEN
     Indication: Back pain
  44. TYLENOL [Concomitant]
     Active Substance: ACETAMINOPHEN
     Indication: Lacunar infarction
  45. TYLENOL [Concomitant]
     Active Substance: ACETAMINOPHEN
     Indication: Discomfort
  46. FLEXERIL [Concomitant]
     Active Substance: CYCLOBENZAPRINE HYDROCHLORIDE
     Indication: Lumbar vertebral fracture
     Dosage: UNK
     Dates: start: 20180518
  47. FLEXERIL [Concomitant]
     Active Substance: CYCLOBENZAPRINE HYDROCHLORIDE
     Indication: Back pain

REACTIONS (1)
  - Arthritis bacterial [Recovered/Resolved with Sequelae]

NARRATIVE: CASE EVENT DATE: 20210627
